FAERS Safety Report 12300166 (Version 1)
Quarter: 2016Q2

REPORT INFORMATION
  Report Type: Spontaneous
  Country: US (occurrence: None)
  Receive Date: 20160422
  Receipt Date: 20160422
  Transmission Date: 20160815
  Serious: No
  Sender: FDA-Public Use
  Company Number: None

PATIENT
  Age: 36 Year
  Sex: Female

DRUGS (1)
  1. REBIF REBIDOSE [Suspect]
     Active Substance: INTERFERON BETA-1A

REACTIONS (4)
  - Nausea [None]
  - Injection site urticaria [None]
  - Hypersensitivity [None]
  - Somnolence [None]

NARRATIVE: CASE EVENT DATE: 20160421
